FAERS Safety Report 7506529-1 (Version None)
Quarter: 2011Q2

REPORT INFORMATION
  Report Type: 
  Country: None (occurrence: None)
  Receive Date: 20110526
  Receipt Date: 20110518
  Transmission Date: 20111010
  Serious: Yes (Hospitalization)
  Sender: FDA-Public Use
  Company Number: US-MERCK-1105USA02903

PATIENT
  Age: 78 Year
  Sex: Female

DRUGS (4)
  1. VYTORIN [Suspect]
     Indication: BLOOD CHOLESTEROL INCREASED
     Route: 048
     Dates: start: 20040101
  2. LEVOTHYROXINE SODIUM [Concomitant]
     Route: 065
  3. EFFEXOR [Concomitant]
     Route: 065
  4. ASPIRIN [Concomitant]
     Route: 065

REACTIONS (2)
  - EAR INFECTION VIRAL [None]
  - HYPERTENSION [None]
